FAERS Safety Report 11302798 (Version 2)
Quarter: 2017Q3

REPORT INFORMATION
  Report Type: Spontaneous
  Country: US (occurrence: US)
  Receive Date: 20150723
  Receipt Date: 20170824
  Transmission Date: 20171127
  Serious: Yes (Hospitalization)
  Sender: FDA-Public Use
  Company Number: US-SA-2015SA104919

PATIENT
  Sex: Female

DRUGS (6)
  1. LANTUS SOLOSTAR [Suspect]
     Active Substance: INSULIN GLARGINE
     Indication: TYPE 1 DIABETES MELLITUS
     Dosage: DOSE:7 UNIT(S)
     Route: 051
  2. SOLOSTAR [Concomitant]
     Active Substance: DEVICE
     Dates: start: 201608, end: 201611
  3. NOVOLOG [Suspect]
     Active Substance: INSULIN ASPART
     Indication: DIABETES MELLITUS
     Route: 065
  4. TOUJEO [Concomitant]
     Active Substance: INSULIN GLARGINE
     Dosage: DOSE:14 UNIT(S)
     Dates: start: 201608, end: 201611
  5. LANTUS SOLOSTAR [Suspect]
     Active Substance: INSULIN GLARGINE
     Indication: TYPE 1 DIABETES MELLITUS
     Dosage: 7 U MORNING AND 8 U EVENING
     Route: 051
     Dates: start: 201611
  6. SOLOSTAR [Suspect]
     Active Substance: DEVICE

REACTIONS (6)
  - Glycosylated haemoglobin increased [Recovering/Resolving]
  - Weight increased [Unknown]
  - Seizure [Unknown]
  - Rash [Unknown]
  - Blood glucose increased [Recovering/Resolving]
  - Product use issue [Unknown]
